FAERS Safety Report 4689424-5 (Version None)
Quarter: 2005Q2

REPORT INFORMATION
  Report Type: 
  Country: None (occurrence: None)
  Receive Date: 20050608
  Receipt Date: 20050131
  Transmission Date: 20051028
  Serious: No
  Sender: FDA-Public Use
  Company Number: 2005-BP-00072BP

PATIENT
  Age: 84 Year
  Sex: Female
  Weight: 83.64 kg

DRUGS (6)
  1. SPIRIVA [Suspect]
     Indication: ASTHMA
     Dosage: 18 MCG (18 MCG, QD)
     Dates: start: 20041020, end: 20041103
  2. SPIRIVA [Suspect]
     Indication: CHRONIC OBSTRUCTIVE PULMONARY DISEASE
     Dosage: 18 MCG (18 MCG, QD)
     Dates: start: 20041020, end: 20041103
  3. ALBUTEROL [Concomitant]
  4. TOPROL (METOPROLOL SUCCINATE) [Concomitant]
  5. NORVASC [Concomitant]
  6. ADVAIR DISKUS 100/50 [Concomitant]

REACTIONS (2)
  - APHONIA [None]
  - PHARYNGOLARYNGEAL PAIN [None]
